FAERS Safety Report 11848827 (Version 1)
Quarter: 2015Q4

REPORT INFORMATION
  Report Type: Spontaneous
  Country: US (occurrence: US)
  Receive Date: 20151218
  Receipt Date: 20151218
  Transmission Date: 20160305
  Serious: Yes (Death, Life-Threatening, Hospitalization, Other)
  Sender: FDA-Public Use
  Company Number: US-ALVOGEN-2015-ALVOGEN-020334

PATIENT
  Age: 73 Year
  Sex: Male

DRUGS (19)
  1. PIOGLITAZONE. [Concomitant]
     Active Substance: PIOGLITAZONE
     Indication: TYPE 2 DIABETES MELLITUS
     Dates: start: 20150407
  2. COQ10 [Concomitant]
     Active Substance: UBIDECARENONE
     Indication: SUPPLEMENTATION THERAPY
     Dates: start: 19980315
  3. KETOROLAC TROMETHAMINE. [Concomitant]
     Active Substance: KETOROLAC TROMETHAMINE
     Indication: GOUTY ARTHRITIS
     Dates: start: 20150814, end: 20150814
  4. LEVOTHYROXINE. [Concomitant]
     Active Substance: LEVOTHYROXINE
     Indication: HYPOTHYROIDISM
     Route: 048
     Dates: start: 19990625
  5. ROCEPHIN [Suspect]
     Active Substance: CEFTRIAXONE SODIUM
     Indication: GOUTY ARTHRITIS
     Route: 042
     Dates: start: 20150814, end: 20150814
  6. PRUNUS SEROTINA [Concomitant]
     Indication: GOUT
     Dates: start: 20150601
  7. FISH OIL [Concomitant]
     Active Substance: FISH OIL
     Indication: ARTERIOSCLEROSIS
     Dates: start: 20100405
  8. LISINOPRIL. [Concomitant]
     Active Substance: LISINOPRIL
     Indication: HYPERTENSION
     Dates: start: 19980813
  9. NAPROXEN. [Concomitant]
     Active Substance: NAPROXEN
     Indication: GOUTY ARTHRITIS
     Dates: start: 20150814
  10. PRUNUS SEROTINA [Concomitant]
     Indication: SUPPLEMENTATION THERAPY
     Dates: start: 20150601
  11. INDOCIN [Concomitant]
     Active Substance: INDOMETHACIN\INDOMETHACIN SODIUM
     Indication: GOUT
     Dates: start: 20150814
  12. PLACEBO [Concomitant]
     Active Substance: UNSPECIFIED INGREDIENT
     Indication: CARDIOVASCULAR DISORDER
     Route: 058
     Dates: start: 20150819
  13. KOJI [Concomitant]
     Indication: SUPPLEMENTATION THERAPY
     Dates: start: 20150601
  14. SITAGLIPTIN [Concomitant]
     Active Substance: SITAGLIPTIN
     Indication: TYPE 2 DIABETES MELLITUS
     Dates: start: 20130315
  15. MULTIVITAMIN [Concomitant]
     Active Substance: VITAMINS
     Indication: SUPPLEMENTATION THERAPY
     Dates: start: 19900305
  16. HYDROCODONE BITARTRATE/PARACETAMOL [Concomitant]
     Indication: GOUTY ARTHRITIS
     Dates: start: 20150814
  17. CLINDAMYCIN [Suspect]
     Active Substance: CLINDAMYCIN\CLINDAMYCIN PHOSPHATE
     Indication: GOUTY ARTHRITIS
     Route: 042
     Dates: start: 20150814, end: 20150814
  18. ASPIRIN. [Concomitant]
     Active Substance: ASPIRIN
     Indication: ARTERIOSCLEROSIS
     Dates: start: 19980205
  19. IRON [Concomitant]
     Active Substance: IRON
     Indication: IRON DEFICIENCY
     Dates: start: 20100405

REACTIONS (4)
  - Megacolon [Fatal]
  - Tachycardia [Not Recovered/Not Resolved]
  - Sepsis [Fatal]
  - Clostridium difficile colitis [Fatal]

NARRATIVE: CASE EVENT DATE: 20150826
